FAERS Safety Report 9881808 (Version 2)
Quarter: 2014Q1

REPORT INFORMATION
  Report Type: Spontaneous
  Country: US (occurrence: US)
  Receive Date: 20140207
  Receipt Date: 20140312
  Transmission Date: 20141002
  Serious: Yes (Other)
  Sender: FDA-Public Use
  Company Number: US-AMGEN-USASP2014008059

PATIENT
  Age: 65 Year
  Sex: Female
  Weight: 78.91 kg

DRUGS (11)
  1. PROLIA [Suspect]
     Indication: OSTEOPOROSIS POSTMENOPAUSAL
     Dosage: 60 MG/ML, Q6MO
     Route: 058
     Dates: start: 20131212
  2. VENTOLIN HFA [Concomitant]
     Dosage: 1 PUFF 4 TO 6 HOURS, AS NECESSARY
  3. ZOSTRIX                            /00899201/ [Concomitant]
     Dosage: UNK UNK, BID
     Route: 061
  4. DEXILANT [Concomitant]
     Dosage: 60 MG, QD
     Route: 048
  5. FIBER [Concomitant]
     Route: 048
  6. SYNTHROID [Concomitant]
     Dosage: 25 MUG, QD
     Route: 048
  7. BENICAR HCT [Concomitant]
     Dosage: 12.5 MG, QD
     Route: 048
  8. CRESTOR [Concomitant]
     Dosage: 20 MG, UNK
     Route: 048
  9. CLINORIL [Concomitant]
     Dosage: 150 MG, BID
     Route: 048
  10. EFFEXOR [Concomitant]
     Dosage: 37.5 MG, QD
     Route: 048
  11. ULTRAM                             /00599202/ [Concomitant]
     Dosage: 50 MG, QD
     Route: 048

REACTIONS (11)
  - Depression [Unknown]
  - Gait disturbance [Unknown]
  - Pollakiuria [Recovered/Resolved]
  - Dyspnoea [Unknown]
  - Weight bearing difficulty [Unknown]
  - Joint range of motion decreased [Unknown]
  - Nausea [Unknown]
  - Dizziness [Unknown]
  - Myalgia [Not Recovered/Not Resolved]
  - Arthralgia [Not Recovered/Not Resolved]
  - Pain in extremity [Not Recovered/Not Resolved]
